FAERS Safety Report 8064421-0 (Version None)
Quarter: 2012Q1

REPORT INFORMATION
  Report Type: 
  Country: None (occurrence: None)
  Receive Date: 20120123
  Receipt Date: 20120113
  Transmission Date: 20120608
  Serious: Yes (Other)
  Sender: FDA-Public Use
  Company Number: CHPA2012US001371

PATIENT
  Age: 81 Year
  Sex: Female

DRUGS (1)
  1. GAS-X CHEWABLE TABLETS UNKNOWN [Suspect]
     Indication: FLATULENCE
     Dosage: 1 DF, BID, PRN
     Route: 048

REACTIONS (1)
  - RASH [None]
